FAERS Safety Report 25230891 (Version 1)
Quarter: 2025Q2

REPORT INFORMATION
  Report Type: Spontaneous
  Country: US (occurrence: None)
  Receive Date: 20250423
  Receipt Date: 20250423
  Transmission Date: 20250716
  Serious: Yes (Hospitalization)
  Sender: FDA-CTU
  Company Number: None

PATIENT
  Sex: Male

DRUGS (2)
  1. AMBRISENTAN [Suspect]
     Active Substance: AMBRISENTAN
     Indication: Pulmonary arterial hypertension
     Dosage: FREQUENCY : DAILY;?
     Route: 048
     Dates: start: 20230913
  2. TYVASO DPI [Suspect]
     Active Substance: TREPROSTINIL

REACTIONS (7)
  - Constipation [None]
  - Sinus disorder [None]
  - Dyspnoea [None]
  - Mood altered [None]
  - Dizziness [None]
  - Weight abnormal [None]
  - Fatigue [None]
